FAERS Safety Report 13777846 (Version 1)
Quarter: 2017Q3

REPORT INFORMATION
  Report Type: Spontaneous
  Country: US (occurrence: US)
  Receive Date: 20170721
  Receipt Date: 20170721
  Transmission Date: 20171127
  Serious: Yes (Hospitalization)
  Sender: FDA-Public Use
  Company Number: US-ALLERGAN-1729964US

PATIENT
  Sex: Male

DRUGS (2)
  1. VIIBRYD [Suspect]
     Active Substance: VILAZODONE HYDROCHLORIDE
     Dosage: 20 MG, UNK
     Route: 065
     Dates: start: 20170706, end: 201707
  2. VIIBRYD [Suspect]
     Active Substance: VILAZODONE HYDROCHLORIDE
     Indication: PRODUCT USED FOR UNKNOWN INDICATION
     Dosage: 10 MG, UNK
     Route: 065
     Dates: start: 20170629, end: 20170705

REACTIONS (5)
  - Road traffic accident [Recovered/Resolved]
  - Hypokalaemia [Unknown]
  - Dizziness [Unknown]
  - Diarrhoea [Unknown]
  - Hypertension [Unknown]

NARRATIVE: CASE EVENT DATE: 20170712
